FAERS Safety Report 6600673-9 (Version None)
Quarter: 2010Q1

REPORT INFORMATION
  Report Type: 
  Country: None (occurrence: None)
  Receive Date: 20100223
  Receipt Date: 20100223
  Transmission Date: 20100710
  Serious: Yes (Life-Threatening, Hospitalization)
  Sender: FDA-Public Use
  Company Number: None

PATIENT
  Age: 58 Year
  Sex: Male
  Weight: 110 kg

DRUGS (4)
  1. SUCCINYLCHOLINE CHLORIDE [Suspect]
     Indication: ANAESTHESIA
     Dosage: ONCE IV
     Route: 042
     Dates: start: 20100212, end: 20100212
  2. VERSED [Suspect]
     Dosage: ONCE IV
     Route: 042
  3. PROPOFOL [Suspect]
  4. DANTROLENE SODIUM [Suspect]

REACTIONS (8)
  - BLOOD CALCIUM DECREASED [None]
  - BLOOD MAGNESIUM DECREASED [None]
  - END-TIDAL CO2 INCREASED [None]
  - HYPERKALAEMIA [None]
  - HYPERTHERMIA MALIGNANT [None]
  - RESPIRATORY FAILURE [None]
  - RHABDOMYOLYSIS [None]
  - VENOUS THROMBOSIS [None]
